FAERS Safety Report 9904874 (Version 3)
Quarter: 2014Q2

REPORT INFORMATION
  Report Type: Spontaneous
  Country: US (occurrence: US)
  Receive Date: 20140218
  Receipt Date: 20140618
  Transmission Date: 20141212
  Serious: Yes (Hospitalization)
  Sender: FDA-Public Use
  Company Number: US-BAYER-2014-025125

PATIENT
  Age: 35 Year
  Sex: Female
  Weight: 83.45 kg

DRUGS (11)
  1. MIRENA [Suspect]
     Indication: CONTRACEPTION
     Dosage: 20 MCG/24HR, CONT
     Route: 015
     Dates: start: 20080220, end: 20130315
  2. MIRENA [Suspect]
     Indication: MENSTRUAL CYCLE MANAGEMENT
  3. LASIX [Concomitant]
     Dosage: 40 MG, DAILY
  4. PROZAC [Concomitant]
     Dosage: 20 MG, DAILY
  5. BUTALBITAL COMPOUND [Concomitant]
     Dosage: 50-325-40-30 MG AS NEEDED EVERY 4 HOURS
  6. ALLEGRA [Concomitant]
     Dosage: 180 MG, DAILY
  7. KLOR-CON [Concomitant]
     Dosage: 10 MEQ, DAILY
  8. TOPAMAX [Concomitant]
     Dosage: 200 MG, HS
  9. BUPROPION [Concomitant]
     Dosage: 150 MG DAILY
  10. ESGIC-PLUS [Concomitant]
     Indication: PAIN
     Dosage: 50-500-40 MG FOUR TIMES DAILY AS NEEDED
  11. CIPRO [Concomitant]

REACTIONS (7)
  - Embedded device [None]
  - Injury [None]
  - Abdominal pain [None]
  - Emotional distress [None]
  - Device misuse [None]
  - Dyspareunia [None]
  - Device dislocation [None]
